FAERS Safety Report 21584250 (Version 1)
Quarter: 2022Q4

REPORT INFORMATION
  Report Type: Report from Study
  Country: US (occurrence: None)
  Receive Date: 20221111
  Receipt Date: 20221111
  Transmission Date: 20230112
  Serious: Yes (Death)
  Sender: FDA-Public Use
  Company Number: 2022A371448

PATIENT
  Age: 28533 Day
  Sex: Male
  Weight: 86.4 kg

DRUGS (22)
  1. CALQUENCE [Suspect]
     Active Substance: ACALABRUTINIB
     Indication: Waldenstrom^s macroglobulinaemia
     Route: 048
  2. ACETAMINOPHEN [Concomitant]
     Active Substance: ACETAMINOPHEN
  3. ACYCLOVIR [Concomitant]
     Active Substance: ACYCLOVIR
  4. ADVAIR DISKUS [Concomitant]
     Active Substance: FLUTICASONE PROPIONATE\SALMETEROL XINAFOATE
  5. ALBUTEROL [Concomitant]
     Active Substance: ALBUTEROL
  6. ASPIRIN [Concomitant]
     Active Substance: ASPIRIN
  7. ATORVASTATIN [Concomitant]
     Active Substance: ATORVASTATIN
  8. CETIRIZINE [Concomitant]
     Active Substance: CETIRIZINE HYDROCHLORIDE
  9. FISH OIL [Concomitant]
     Active Substance: FISH OIL
  10. FLONASE [Concomitant]
     Active Substance: FLUTICASONE PROPIONATE
  11. IPRATROPIUM [Concomitant]
     Active Substance: IPRATROPIUM
  12. LOSARTAN [Concomitant]
     Active Substance: LOSARTAN
  13. METHYLPREDNISOLONE [Concomitant]
     Active Substance: METHYLPREDNISOLONE
  14. MIRTAZAPINE [Concomitant]
     Active Substance: MIRTAZAPINE
  15. MUCINEX [Concomitant]
     Active Substance: GUAIFENESIN
  16. VITAMINS [Concomitant]
     Active Substance: VITAMINS
  17. NITROSTAT [Concomitant]
     Active Substance: NITROGLYCERIN
  18. OMEGA 3 [Concomitant]
     Active Substance: CAPSAICIN
  19. PREVIDENT [Concomitant]
     Active Substance: SODIUM FLUORIDE
  20. PROAIR HFA [Concomitant]
     Active Substance: ALBUTEROL SULFATE
  21. SPIRONOLACTONE [Concomitant]
     Active Substance: SPIRONOLACTONE
  22. TAMSULOSIN [Concomitant]
     Active Substance: TAMSULOSIN

REACTIONS (1)
  - Death [Fatal]

NARRATIVE: CASE EVENT DATE: 20221106
